FAERS Safety Report 4294068-3 (Version None)
Quarter: 2004Q1

REPORT INFORMATION
  Report Type: 
  Country: None (occurrence: None)
  Receive Date: 20040211
  Receipt Date: 20040130
  Transmission Date: 20041129
  Serious: No
  Sender: FDA-Public Use
  Company Number: 04P-020-0247376-00

PATIENT
  Age: 51 Year
  Sex: Female
  Weight: 59.5 kg

DRUGS (5)
  1. HUMIRA [Suspect]
     Indication: RHEUMATOID ARTHRITIS
     Dosage: 40 MG, 1 IN 2 WK, SUBCUTAENOUS
     Route: 058
     Dates: start: 20030731, end: 20040102
  2. PREDNISONE [Concomitant]
  3. METHTREXATE [Concomitant]
  4. FOLIC ACID [Concomitant]
  5. ROFECOXIB [Concomitant]

REACTIONS (4)
  - ABDOMINAL MASS [None]
  - CYTOMEGALOVIRUS ANTIBODY POSITIVE [None]
  - PELVIC INFECTION [None]
  - RUBELLA ANTIBODY POSITIVE [None]
